FAERS Safety Report 11106778 (Version 1)
Quarter: 2015Q2

REPORT INFORMATION
  Report Type: Spontaneous
  Country: ES (occurrence: None)
  Receive Date: 20150508
  Receipt Date: 20150508
  Transmission Date: 20150821
  Serious: Yes (Hospitalization, Other)
  Sender: FDA-Public Use
  Company Number: ES-ZYDUS-007882

PATIENT
  Age: 69 Year
  Sex: Male

DRUGS (6)
  1. CHEMOTHERAPEUTICS NOS (CHEMOTHERAPEUTICS NOS) [Concomitant]
  2. LEVOFLOXACIN (LEVOFLOXACIN) [Suspect]
     Active Substance: LEVOFLOXACIN
     Indication: PROPHYLAXIS
     Dosage: 500.00-MG-24.0HOURS/ORAL
     Route: 048
  3. LINEZOLID (LINEZOLID) [Suspect]
     Active Substance: LINEZOLID
     Route: 042
  4. VANCOMYCIN [Concomitant]
     Active Substance: VANCOMYCIN
  5. MEROPENEM (MEROPENEM) [Suspect]
     Active Substance: MEROPENEM
     Indication: NEUTROPENIA
  6. PIPERACILLIN/TAZO [Suspect]
     Active Substance: PIPERACILLIN SODIUM\TAZOBACTAM SODIUM
     Route: 042

REACTIONS (4)
  - Staphylococcal infection [None]
  - Granulocytopenia [None]
  - Enterococcal infection [None]
  - Pathogen resistance [None]
